FAERS Safety Report 5638481-8 (Version None)
Quarter: 2008Q1

REPORT INFORMATION
  Report Type: 
  Country: None (occurrence: None)
  Receive Date: 20080226
  Receipt Date: 20070108
  Transmission Date: 20080703
  Serious: No
  Sender: FDA-Public Use
  Company Number: A0635032A

PATIENT
  Age: 63 Year
  Sex: Female

DRUGS (2)
  1. IMITREX [Suspect]
     Indication: MIGRAINE
     Route: 058
  2. PROZAC [Concomitant]
     Dosage: 20MG PER DAY

REACTIONS (1)
  - THERAPEUTIC RESPONSE UNEXPECTED [None]
